FAERS Safety Report 7828629-9 (Version None)
Quarter: 2011Q4

REPORT INFORMATION
  Report Type: 
  Country: None (occurrence: None)
  Receive Date: 20111020
  Receipt Date: 20111011
  Transmission Date: 20120403
  Serious: Yes (Other)
  Sender: FDA-Public Use
  Company Number: GXKR2011DE03032

PATIENT
  Sex: Female
  Weight: 57 kg

DRUGS (1)
  1. GABAPENTIN [Suspect]
     Indication: NEURALGIA
     Dosage: 300 MG, TID
     Route: 048
     Dates: start: 20110901

REACTIONS (3)
  - TOOTH EROSION [None]
  - TOOTH FRACTURE [None]
  - DENTAL PLAQUE [None]
